FAERS Safety Report 12892434 (Version 2)
Quarter: 2016Q4

REPORT INFORMATION
  Report Type: Spontaneous
  Country: US (occurrence: US)
  Receive Date: 20161028
  Receipt Date: 20161227
  Transmission Date: 20170207
  Serious: No
  Sender: FDA-Public Use
  Company Number: US-PFIZER INC-2016501620

PATIENT
  Age: 63 Year
  Sex: Male

DRUGS (2)
  1. GABAPENTIN. [Suspect]
     Active Substance: GABAPENTIN
     Indication: BIRTH MARK
     Dosage: 900 MG, DAILY
     Dates: start: 20111111
  2. GABAPENTIN. [Suspect]
     Active Substance: GABAPENTIN
     Indication: STURGE-WEBER SYNDROME

REACTIONS (1)
  - Drug ineffective for unapproved indication [Not Recovered/Not Resolved]
